FAERS Safety Report 11320612 (Version 1)
Quarter: 2015Q3

REPORT INFORMATION
  Report Type: Spontaneous
  Country: US (occurrence: None)
  Receive Date: 20150728
  Receipt Date: 20150728
  Transmission Date: 20151125
  Serious: Yes (Hospitalization)
  Sender: FDA-Public Use
  Company Number: None

PATIENT
  Age: 81 Year
  Sex: Male
  Weight: 89.2 kg

DRUGS (1)
  1. BORTEZOMIB [Suspect]
     Active Substance: BORTEZOMIB
     Indication: PLASMA CELL MYELOMA
     Dosage: 2.6 MG OTHER
     Route: 058
     Dates: start: 20140318, end: 20141015

REACTIONS (2)
  - Deep vein thrombosis [None]
  - Neuropathy peripheral [None]

NARRATIVE: CASE EVENT DATE: 20140813
